FAERS Safety Report 9859736 (Version 1)
Quarter: 2014Q1

REPORT INFORMATION
  Report Type: Spontaneous
  Country: DE (occurrence: DE)
  Receive Date: 20140131
  Receipt Date: 20140131
  Transmission Date: 20141002
  Serious: Yes (Life-Threatening, Hospitalization)
  Sender: FDA-Public Use
  Company Number: DE-TEVA-458290GER

PATIENT
  Age: 65 Year
  Sex: Female
  Weight: 80 kg

DRUGS (1)
  1. METFORMIN [Suspect]
     Indication: DIABETES MELLITUS
     Dosage: 2X1000G
     Route: 048
     Dates: end: 20140108

REACTIONS (3)
  - Renal failure acute [Recovering/Resolving]
  - Lactic acidosis [Recovering/Resolving]
  - Resuscitation [Recovering/Resolving]
